FAERS Safety Report 5657061-1 (Version None)
Quarter: 2008Q1

REPORT INFORMATION
  Report Type: 
  Country: None (occurrence: None)
  Receive Date: 20080219
  Receipt Date: 20071107
  Transmission Date: 20080703
  Serious: No
  Sender: FDA-Public Use
  Company Number: WAES 0711USA01793

PATIENT
  Age: 60 Year
  Sex: Female

DRUGS (1)
  1. JANUVIA [Suspect]
     Dosage: 100 MG/1X/PO
     Route: 048
     Dates: start: 20070407, end: 20070407

REACTIONS (3)
  - ASTHENIA [None]
  - DRUG ADMINISTRATION ERROR [None]
  - NERVOUSNESS [None]
